FAERS Safety Report 4407619-2 (Version None)
Quarter: 2004Q3

REPORT INFORMATION
  Report Type: 
  Country: None (occurrence: None)
  Receive Date: 20040726
  Receipt Date: 20040721
  Transmission Date: 20050211
  Serious: Yes (Death, Hospitalization)
  Sender: FDA-Public Use
  Company Number: PHBS2004DE09688

PATIENT
  Age: 56 Year
  Sex: Female

DRUGS (3)
  1. IMATINIB [Suspect]
     Indication: CHRONIC MYELOID LEUKAEMIA
     Dosage: 400 MG/D
     Route: 065
  2. IMATINIB [Suspect]
     Dosage: 200 MG/D
     Route: 065
  3. IMATINIB [Suspect]
     Dosage: 400 MG/D
     Route: 065

REACTIONS (9)
  - ATAXIA [None]
  - BLAST CELL CRISIS [None]
  - BONE MARROW TRANSPLANT [None]
  - CARDIAC FAILURE [None]
  - CENTRAL NERVOUS SYSTEM NEOPLASM [None]
  - GRANULOCYTOPENIA [None]
  - LUMBAR PUNCTURE ABNORMAL [None]
  - SENSORIMOTOR DISORDER [None]
  - VISION BLURRED [None]
